FAERS Safety Report 4702325-9 (Version None)
Quarter: 2005Q2

REPORT INFORMATION
  Report Type: 
  Country: None (occurrence: None)
  Receive Date: 20050623
  Receipt Date: 20031204
  Transmission Date: 20051028
  Serious: Yes (Other)
  Sender: FDA-Public Use
  Company Number: 601001

PATIENT
  Age: 26 Year
  Sex: Male

DRUGS (2)
  1. GAMMAGARD S/D [Suspect]
     Indication: HYPOGAMMAGLOBULINAEMIA
     Dosage: 50 GM; EVERY MO; IV
     Route: 042
     Dates: start: 20020828, end: 20020828
  2. GAMIMUNE N 10% [Suspect]
     Indication: HYPOGAMMAGLOBULINAEMIA
     Dates: start: 20020101, end: 20020701

REACTIONS (12)
  - DYSPNOEA [None]
  - FLUSHING [None]
  - HEPATITIS B [None]
  - HEPATITIS C [None]
  - INFLUENZA LIKE ILLNESS [None]
  - MENTAL STATUS CHANGES [None]
  - MUSCLE SPASMS [None]
  - RED CELL DISTRIBUTION WIDTH INCREASED [None]
  - TYMPANIC MEMBRANE SCARRING [None]
  - URTICARIA [None]
  - VOMITING [None]
  - WHEEZING [None]
